FAERS Safety Report 9387912 (Version 1)
Quarter: 2013Q3

REPORT INFORMATION
  Report Type: Spontaneous
  Country: US (occurrence: US)
  Receive Date: 20130708
  Receipt Date: 20130708
  Transmission Date: 20140515
  Serious: No
  Sender: FDA-Public Use
  Company Number: US-BAYER-2013-083049

PATIENT
  Age: 37 Year
  Sex: Male
  Weight: 102.4 kg

DRUGS (1)
  1. ALEVE TABLET [Suspect]
     Dosage: 1 DF, PRN
     Route: 048

REACTIONS (1)
  - Incorrect drug administration duration [None]
